FAERS Safety Report 9800950 (Version 3)
Quarter: 2014Q1

REPORT INFORMATION
  Report Type: Spontaneous
  Country: US (occurrence: US)
  Receive Date: 20140107
  Receipt Date: 20140324
  Transmission Date: 20141002
  Serious: Yes (Hospitalization)
  Sender: FDA-Public Use
  Company Number: US-BEH-2011030462

PATIENT
  Age: 11 Year
  Sex: Female
  Weight: 78 kg

DRUGS (32)
  1. PRIVIGEN [Suspect]
     Dosage: 3 DAYS EVERY MONTH
     Route: 042
     Dates: start: 20110122
  2. PRIVIGEN [Suspect]
     Indication: OPTIC NEURITIS
     Dosage: 10 GM VIAL
     Dates: start: 20111102, end: 20111104
  3. PRIVIGEN [Suspect]
     Dosage: 20 GM VIAL
     Dates: start: 20111102, end: 20111104
  4. PRIVIGEN [Suspect]
     Dosage: FOR 3 DAYS MONTHLY AT MAX RATE OF 345 ML/HOUR
     Route: 042
     Dates: start: 20120506, end: 20120506
  5. PRIVIGEN [Suspect]
     Dosage: FOR 3 DAYS MONTHLY AT MAX RATE OF 345 ML/HOUR
     Route: 042
     Dates: start: 20120506, end: 20120506
  6. PRIVIGEN [Suspect]
     Dosage: FOR 3 DAYS MONTHLY AT MAX RATE OF 345 ML/HOUR
     Route: 042
     Dates: start: 20120506, end: 20120506
  7. PRIVIGEN [Suspect]
     Dosage: FOR 3 DAYS MONTHLY AT MAX RATE OF 345 ML/HOUR
     Route: 042
     Dates: start: 20120506, end: 20120506
  8. PRIVIGEN [Suspect]
     Dosage: 10 GM; 50 GM DAILY X 3DAYS MONTHLY
     Route: 042
  9. PRIVIGEN [Suspect]
     Dosage: 20 GM;50 GM DAILY X 3DAYS MONTHLY
     Route: 042
  10. PRIVIGEN [Suspect]
     Dosage: 20 GM;50 GM DAILY X 3DAYS MONTHLY
     Route: 042
  11. PRIVIGEN [Suspect]
     Dosage: 10 GM VIAL; 50 GM DAILY FOR 3 DAYS EVERY MONTH; 0.5 MG/KG/MIN. INCREASING TO RATE OF 8 MG/KG/MIN
     Route: 042
  12. PRIVIGEN [Suspect]
     Dosage: 20 VIAL; 50 GM DAILY FOR 3 DAYS EVERY MONTH; 0.5 MG/KG/MIN. INCREASING TO RATE OF 8 MG/KG/MIN
     Route: 042
  13. FROVA [Suspect]
     Indication: MIGRAINE
  14. MAXALT [Concomitant]
  15. MIRALAX [Concomitant]
  16. VITAMIN D3 [Concomitant]
  17. FAMOTIDINE [Concomitant]
  18. MULTIVITAMIN [Concomitant]
  19. IBUPROFEN [Concomitant]
  20. PEPCID [Concomitant]
  21. ACETAMINOPHEN [Concomitant]
  22. FROVA [Concomitant]
  23. NAPROXEN [Concomitant]
  24. VYVANSE [Concomitant]
  25. OMEPRAZOLE [Concomitant]
  26. ZONEGRAN [Concomitant]
  27. DIPHENHYDRAMINE [Concomitant]
     Indication: PREMEDICATION
  28. HEPARIN [Concomitant]
  29. SODIUM CHLORIDE [Concomitant]
  30. EPINEPHRINE [Concomitant]
  31. BENADRYL [Concomitant]
     Indication: PREMEDICATION
  32. LIDOCAINE PRILOCAINE [Concomitant]
     Indication: PREMEDICATION

REACTIONS (17)
  - Migraine [Not Recovered/Not Resolved]
  - Asthenia [Recovering/Resolving]
  - Eye pain [Not Recovered/Not Resolved]
  - Photosensitivity reaction [Not Recovered/Not Resolved]
  - Abdominal discomfort [Unknown]
  - Nausea [Unknown]
  - Headache [Unknown]
  - Blindness unilateral [Unknown]
  - Headache [Recovered/Resolved]
  - Eye irritation [Recovered/Resolved]
  - Off label use [Unknown]
  - Sinusitis [Recovered/Resolved]
  - Eye infection [Recovered/Resolved]
  - Ear infection [Recovered/Resolved]
  - Rhinitis [Recovered/Resolved]
  - Pharyngitis [Recovered/Resolved]
  - Catheterisation venous [Recovered/Resolved]
